FAERS Safety Report 7325258-0 (Version None)
Quarter: 2011Q1

REPORT INFORMATION
  Report Type: 
  Country: None (occurrence: None)
  Receive Date: 20110302
  Receipt Date: 20110222
  Transmission Date: 20110831
  Serious: Yes (Other)
  Sender: FDA-Public Use
  Company Number: US-PFIZER INC-2011039477

PATIENT
  Sex: Female

DRUGS (2)
  1. PRISTIQ [Suspect]
     Dosage: 50 MG, 1X/DAY
  2. PRISTIQ [Suspect]
     Dosage: 100 MG, 1X/DAY

REACTIONS (3)
  - THINKING ABNORMAL [None]
  - INSOMNIA [None]
  - PALPITATIONS [None]
